FAERS Safety Report 21962646 (Version 3)
Quarter: 2023Q1

REPORT INFORMATION
  Report Type: Spontaneous
  Country: PK (occurrence: PK)
  Receive Date: 20230207
  Receipt Date: 20230330
  Transmission Date: 20230418
  Serious: Yes (Other)
  Sender: FDA-Public Use
  Company Number: PK-PFIZER INC-PV202200119191

PATIENT
  Age: 21 Year
  Sex: Male
  Weight: 65 kg

DRUGS (7)
  1. ENBREL [Suspect]
     Active Substance: ETANERCEPT
     Indication: Psoriatic arthropathy
     Dosage: 50 MILLIGRAM, QWK
     Route: 058
     Dates: start: 20221107
  2. ENBREL [Suspect]
     Active Substance: ETANERCEPT
     Indication: Spondylitis
     Dosage: UNK
     Route: 065
  3. Risek [Concomitant]
     Indication: Hyperchlorhydria
     Dosage: 40 MG (1+0+0+0, BEFORE MEAL, 1 CAP IN MORNING, BEFORE MEAL, BREAKFAST)
  4. PREDNISOLONE [Concomitant]
     Active Substance: PREDNISOLONE
     Dosage: 5 MILLIGRAM
  5. FOLIC ACID [Concomitant]
     Active Substance: FOLIC ACID
     Dosage: 5 MILLIGRAM, QD
  6. XOBIX [Concomitant]
     Dosage: 15 MILLIGRAM, QD
  7. Voltarol emulgel [Concomitant]
     Dosage: UNK

REACTIONS (10)
  - Weight decreased [Unknown]
  - Musculoskeletal stiffness [Unknown]
  - Pain [Unknown]
  - Joint range of motion decreased [Unknown]
  - Synovitis [Unknown]
  - Blood pressure increased [Unknown]
  - White blood cell count decreased [Unknown]
  - Blood creatine decreased [Unknown]
  - Dysuria [Recovered/Resolved]
  - Off label use [Unknown]

NARRATIVE: CASE EVENT DATE: 20230130
